FAERS Safety Report 19443887 (Version 1)
Quarter: 2021Q2

REPORT INFORMATION
  Report Type: Spontaneous
  Country: RO (occurrence: RO)
  Receive Date: 20210621
  Receipt Date: 20210621
  Transmission Date: 20210717
  Serious: Yes (Other)
  Sender: FDA-Public Use
  Company Number: RO-AMGEN-ROUSP2021095558

PATIENT
  Age: 47 Year
  Sex: Female

DRUGS (9)
  1. 5 FU [Concomitant]
     Active Substance: FLUOROURACIL
     Indication: RECTAL ADENOCARCINOMA
     Dosage: UNK (6 ADMINISTRATIONS)
     Dates: start: 20201123
  2. OXALIPLATIN. [Concomitant]
     Active Substance: OXALIPLATIN
     Indication: RECTAL ADENOCARCINOMA
     Dosage: UNK (6 ADMINISTRATIONS)
     Dates: start: 20201123
  3. FOLINIC ACID [Concomitant]
     Active Substance: LEUCOVORIN
     Indication: METASTASES TO LIVER
  4. DOXYCYCLINE. [Concomitant]
     Active Substance: DOXYCYCLINE
     Dosage: 100 MILLIGRAM, BID
  5. FOLINIC ACID [Concomitant]
     Active Substance: LEUCOVORIN
     Indication: RECTAL ADENOCARCINOMA
     Dosage: UNK (6 ADMINISTRATIONS)
     Dates: start: 20201123
  6. 5 FU [Concomitant]
     Active Substance: FLUOROURACIL
     Indication: METASTASES TO LIVER
  7. PANITUMUMAB [Suspect]
     Active Substance: PANITUMUMAB
     Indication: RECTAL ADENOCARCINOMA
     Dosage: UNK (6 ADMINISTRATIONS)
     Route: 065
     Dates: start: 20201123
  8. PANITUMUMAB [Suspect]
     Active Substance: PANITUMUMAB
     Indication: METASTASES TO LIVER
  9. OXALIPLATIN. [Concomitant]
     Active Substance: OXALIPLATIN
     Indication: METASTASES TO LIVER

REACTIONS (3)
  - Postoperative adhesion [Unknown]
  - Hepatic function abnormal [Recovering/Resolving]
  - SARS-CoV-2 test positive [Unknown]

NARRATIVE: CASE EVENT DATE: 202101
